FAERS Safety Report 23262251 (Version 1)
Quarter: 2023Q4

REPORT INFORMATION
  Report Type: Spontaneous
  Country: US (occurrence: US)
  Receive Date: 20231205
  Receipt Date: 20231205
  Transmission Date: 20240110
  Serious: Yes (Hospitalization, Other)
  Sender: FDA-Public Use
  Company Number: US-HIKMA PHARMACEUTICALS USA INC.-US-H14001-23-67477

PATIENT
  Age: 65 Year
  Sex: Female

DRUGS (3)
  1. METHYLPREDNISOLONE [Suspect]
     Active Substance: METHYLPREDNISOLONE
     Indication: Product used for unknown indication
     Dosage: UNK
     Route: 065
     Dates: start: 2016
  2. MORPHINE [Suspect]
     Active Substance: MORPHINE
     Indication: Product used for unknown indication
     Dosage: UNKNOWN
     Route: 065
     Dates: start: 201912
  3. PREDNISONE [Suspect]
     Active Substance: PREDNISONE
     Indication: Staphylococcal infection
     Dosage: 1 TABLET, QD
     Route: 065
     Dates: start: 2017, end: 2017

REACTIONS (20)
  - Hypothermia [Unknown]
  - Respiratory fume inhalation disorder [Unknown]
  - Renal failure [Unknown]
  - Type 2 diabetes mellitus [Recovering/Resolving]
  - Abdominal distension [Unknown]
  - Carpal tunnel syndrome [Unknown]
  - Eye swelling [Recovered/Resolved]
  - Peripheral swelling [Recovered/Resolved]
  - White blood cell count increased [Unknown]
  - Arthritis [Unknown]
  - Stress [Unknown]
  - Weight decreased [Unknown]
  - Hepatic steatosis [Unknown]
  - Arthralgia [Not Recovered/Not Resolved]
  - Glucose tolerance impaired [Unknown]
  - Illness [Unknown]
  - Glycosylated haemoglobin decreased [Unknown]
  - Confusional state [Unknown]
  - Asthenia [Not Recovered/Not Resolved]
  - Polycythaemia vera [Recovered/Resolved]

NARRATIVE: CASE EVENT DATE: 20170101
